FAERS Safety Report 10096866 (Version 1)
Quarter: 2014Q2

REPORT INFORMATION
  Report Type: Other
  Country: US (occurrence: US)
  Receive Date: 20140422
  Receipt Date: 20140422
  Transmission Date: 20141212
  Serious: Yes (Other)
  Sender: FDA-Public Use
  Company Number: US-SHIRE-US201401406

PATIENT
  Age: 20 Year
  Sex: Male
  Weight: 77.98 kg

DRUGS (2)
  1. MAS (MIXED AMPHETAMINE SALTS) [Suspect]
     Indication: ATTENTION DEFICIT/HYPERACTIVITY DISORDER
     Dosage: 20 MG, 1X/DAY:QD (ONCE DAILY MONDAY THROUGH FRIDAY)
     Route: 048
     Dates: start: 201401, end: 201404
  2. MAS (MIXED AMPHETAMINE SALTS) [Suspect]
     Indication: DYSLEXIA

REACTIONS (4)
  - Depression [Recovered/Resolved]
  - Disturbance in attention [Recovered/Resolved]
  - Inappropriate schedule of drug administration [Recovered/Resolved]
  - Drug effect delayed [Recovered/Resolved]
